FAERS Safety Report 10071021 (Version 2)
Quarter: 2014Q3

REPORT INFORMATION
  Report Type: Report from Study
  Country: CN (occurrence: CN)
  Receive Date: 20140410
  Receipt Date: 20140714
  Transmission Date: 20150326
  Serious: Yes (Hospitalization)
  Sender: FDA-Public Use
  Company Number: CN-BRISTOL-MYERS SQUIBB COMPANY-20606406

PATIENT
  Age: 49 Year
  Sex: Male
  Weight: 65 kg

DRUGS (2)
  1. BYETTA [Suspect]
     Active Substance: EXENATIDE
     Indication: TYPE 2 DIABETES MELLITUS
     Route: 058
     Dates: start: 20140227, end: 20140317
  2. ASPIRIN. [Suspect]
     Active Substance: ASPIRIN
     Dosage: 1 DF: 1 PILL, LAST DOSE ON 17-MAR-2014
     Route: 048
     Dates: start: 20140227

REACTIONS (1)
  - Gastric haemorrhage [Recovering/Resolving]

NARRATIVE: CASE EVENT DATE: 20140317
